FAERS Safety Report 10171444 (Version 1)
Quarter: 2014Q2

REPORT INFORMATION
  Report Type: Spontaneous
  Country: CA (occurrence: None)
  Receive Date: 20140512
  Receipt Date: 20140512
  Transmission Date: 20141212
  Serious: Yes (Other)
  Sender: FDA-Public Use
  Company Number: AUR-APL-2014-05474

PATIENT
  Age: 4 Decade
  Sex: Male

DRUGS (4)
  1. LEVETIRACETAM (LEVETIRACETAM) [Suspect]
     Indication: STATUS EPILEPTICUS
  2. OXCARBAZEPINE (OXCARBAZEPINE) [Suspect]
     Indication: STATUS EPILEPTICUS
     Dosage: 1200 MG (600 MG, 2 IN 1 D)
  3. CLONAZEPAM (CLONAZEPAM) (CLONAZEPAM) [Suspect]
     Indication: STATUS EPILEPTICUS
     Dosage: 1 MG (0.5 MG, 2 IN 1 D)
  4. PRIMIDONE [Suspect]
     Indication: STATUS EPILEPTICUS
     Dosage: 750 MG (375 MG, 2 IN 1 D)

REACTIONS (5)
  - Muscle twitching [None]
  - Generalised tonic-clonic seizure [None]
  - Nephrolithiasis [None]
  - Cerebral atrophy [None]
  - Drug effect decreased [None]
